FAERS Safety Report 8254458-0 (Version None)
Quarter: 2012Q2

REPORT INFORMATION
  Report Type: 
  Country: None (occurrence: None)
  Receive Date: 20120403
  Receipt Date: 20120326
  Transmission Date: 20120825
  Serious: Yes (Other)
  Sender: FDA-Public Use
  Company Number: US-BIOGENIDEC-2012BI009073

PATIENT
  Age: 57 Year
  Sex: Male

DRUGS (8)
  1. XANAX [Concomitant]
     Indication: ANXIETY
  2. AMANADINE [Concomitant]
     Indication: FATIGUE
  3. TYSABRI [Suspect]
     Indication: MULTIPLE SCLEROSIS
     Route: 042
     Dates: start: 20120220
  4. NABUMETONE [Concomitant]
     Indication: PAIN
  5. WELLBUTRIN [Concomitant]
     Indication: DEPRESSION
  6. BACLOFEN [Concomitant]
     Indication: MUSCLE SPASTICITY
  7. HYDROCODONE BITARTRATE [Concomitant]
     Indication: PAIN
  8. PROZAC [Concomitant]
     Indication: DEPRESSION

REACTIONS (1)
  - CONVULSION [None]
